FAERS Safety Report 11888818 (Version 1)
Quarter: 2016Q1

REPORT INFORMATION
  Report Type: Spontaneous
  Country: GB (occurrence: GB)
  Receive Date: 20160105
  Receipt Date: 20160105
  Transmission Date: 20160526
  Serious: Yes (Death, Other)
  Sender: FDA-Public Use
  Company Number: GB-CELGENE-THAUK200600199

PATIENT
  Sex: Female

DRUGS (1)
  1. THALIDOMIDE PHARMION [Suspect]
     Active Substance: THALIDOMIDE
     Indication: PLASMA CELL MYELOMA
     Route: 048

REACTIONS (4)
  - Pneumonia [Fatal]
  - Sepsis [Fatal]
  - Varicella [Fatal]
  - Plasma cell myeloma [Fatal]
